FAERS Safety Report 5491641-1 (Version None)
Quarter: 2007Q4

REPORT INFORMATION
  Report Type: 
  Country: None (occurrence: None)
  Receive Date: 20071022
  Receipt Date: 20070430
  Transmission Date: 20080405
  Serious: Yes (Other)
  Sender: FDA-Public Use
  Company Number: NO-NOVOPROD-268407

PATIENT
  Sex: Male

DRUGS (6)
  1. NORDITROPIN [Suspect]
     Indication: GROWTH RETARDATION
     Dosage: 0.1-0.3 MG/DAY
     Dates: start: 20061221, end: 20070126
  2. GENOTROPIN [Suspect]
     Indication: GROWTH RETARDATION
     Dosage: 0.2 - 1 MG/DAY
     Dates: start: 20060502, end: 20060628
  3. GENOTROPIN [Suspect]
     Dosage: 0.2-1 MG/DAY
     Dates: start: 20060801, end: 20061019
  4. LEVOTHYROXINE SODIUM [Concomitant]
     Dosage: 50 - 100 MCG/DAY
  5. TESTOSTERONE [Concomitant]
     Dosage: 1 DF DOSAGE FORM
  6. CORTISONE ACETATE [Concomitant]
     Dosage: 12.5 MG, BID

REACTIONS (1)
  - NEUTROPENIA [None]
